FAERS Safety Report 17835272 (Version 3)
Quarter: 2020Q2

REPORT INFORMATION
  Report Type: Report from Study
  Country: CN (occurrence: CN)
  Receive Date: 20200528
  Receipt Date: 20200615
  Transmission Date: 20200714
  Serious: Yes (Death)
  Sender: FDA-Public Use
  Company Number: CN-SA-2019SA110342

PATIENT

DRUGS (47)
  1. ALLOPURINOL. [Concomitant]
     Active Substance: ALLOPURINOL
     Dosage: 0.25 G, QD
     Route: 048
     Dates: start: 20190327, end: 20190618
  2. ALLOPURINOL. [Concomitant]
     Active Substance: ALLOPURINOL
     Dosage: 24 GRAIN, QD
     Route: 048
     Dates: start: 20190410, end: 20190410
  3. REDUCED GLUTATHIONE SODIUM [Concomitant]
     Active Substance: GLUTATHIONE
     Dosage: 0.6 G, QD
     Route: 042
     Dates: start: 20190327, end: 20190401
  4. FUROSEMIDE. [Concomitant]
     Active Substance: FUROSEMIDE
     Dosage: 20 MG, QD
     Route: 042
     Dates: start: 20190409, end: 20190409
  5. TRAMADOL HYDROCHLORIDE. [Concomitant]
     Active Substance: TRAMADOL HYDROCHLORIDE
     Dosage: 20 MG (TABLET), QD
     Route: 048
     Dates: start: 20190410
  6. DEXAMETHASONE SODIUM PHOSPHATE. [Concomitant]
     Active Substance: DEXAMETHASONE SODIUM PHOSPHATE
     Indication: PROPHYLAXIS
     Dosage: 2 MG, QD
     Route: 042
     Dates: start: 20190401, end: 20190402
  7. DEXAMETHASONE SODIUM PHOSPHATE. [Concomitant]
     Active Substance: DEXAMETHASONE SODIUM PHOSPHATE
     Dosage: 6 MG, QD
     Route: 042
     Dates: start: 20190404, end: 20190504
  8. RECOMBINANT HUMAN GRANULOCYTE COLONY STIMULATING FACTOR [Concomitant]
     Active Substance: GRANULOCYTE COLONY-STIMULATING FACTOR NOS
     Dosage: 200 UG, QD
     Route: 042
     Dates: start: 20190408, end: 20190408
  9. SODIUM GLUCURONIC ACID [Concomitant]
     Dosage: 399 MG, QD
     Route: 042
     Dates: start: 20190327, end: 20190401
  10. POTASSIUM CHLORIDE. [Concomitant]
     Active Substance: POTASSIUM CHLORIDE
     Dosage: 1.5 G, QD
     Route: 042
     Dates: start: 20190331, end: 20190331
  11. TORASEMIDE [Concomitant]
     Active Substance: TORSEMIDE
     Dosage: 40 MG, QD
     Route: 042
     Dates: start: 20190403, end: 20190403
  12. RANITIDINE. [Concomitant]
     Active Substance: RANITIDINE
     Indication: PROPHYLAXIS
     Dosage: 50 MG, 1X
     Route: 042
     Dates: start: 20190403, end: 20190403
  13. METHYLPREDNISOLONE. [Concomitant]
     Active Substance: METHYLPREDNISOLONE
     Indication: PROPHYLAXIS
     Dosage: 100 MG, 1X
     Route: 042
     Dates: start: 20190410, end: 20190410
  14. MAGNESIUM ISOGLYCYRRHIZINATE [Concomitant]
     Active Substance: MAGNESIUM ISOGLYCYRRHIZINATE
     Dosage: 100 MG, QD
     Route: 042
     Dates: start: 20190327, end: 20190410
  15. TRAMADOL HYDROCHLORIDE. [Concomitant]
     Active Substance: TRAMADOL HYDROCHLORIDE
     Dosage: 100 MG, QD
     Route: 048
     Dates: start: 20190402, end: 20190430
  16. DEXAMETHASONE SODIUM PHOSPHATE. [Concomitant]
     Active Substance: DEXAMETHASONE SODIUM PHOSPHATE
     Dosage: 2 MG, QD
     Route: 042
     Dates: start: 20190406, end: 20190408
  17. TORASEMIDE [Concomitant]
     Active Substance: TORSEMIDE
     Dosage: 40 MG, QD
     Route: 042
     Dates: start: 20190331, end: 20190401
  18. TORASEMIDE [Concomitant]
     Active Substance: TORSEMIDE
     Dosage: 10 MG, QD
     Route: 042
     Dates: start: 20190410, end: 20190410
  19. DIAMMONIUM GLYCYRRHIZINATE [Concomitant]
     Active Substance: HERBALS\DIAMMONIUM GLYCYRRHIZINATE
     Dosage: 300 MG, QD
     Route: 048
     Dates: start: 20190410, end: 20190609
  20. RED BLOOD CELLS [Concomitant]
     Active Substance: HUMAN RED BLOOD CELL
     Dosage: TOTAL DAILY DOSE: 2 U
     Route: 042
     Dates: start: 20190402, end: 20190402
  21. RED BLOOD CELLS [Concomitant]
     Active Substance: HUMAN RED BLOOD CELL
     Dosage: TOTAL DAILY DOSE: 2 U
     Route: 042
     Dates: start: 20190406, end: 20190406
  22. SODIUM BICARBONATE. [Concomitant]
     Active Substance: SODIUM BICARBONATE
     Dosage: 12.5 MG, QD
     Route: 042
     Dates: start: 20190327, end: 20190410
  23. BUMETANIDE. [Concomitant]
     Active Substance: BUMETANIDE
     Dosage: 1 MG, QD
     Route: 042
     Dates: start: 20190329, end: 20190401
  24. TORASEMIDE [Concomitant]
     Active Substance: TORSEMIDE
     Dosage: 20 MG, QD
     Route: 042
     Dates: start: 20190406, end: 20190406
  25. BLOOD PLATELETS [Concomitant]
     Dosage: TOTAL DAILY DOSE: 1 U
     Route: 042
     Dates: start: 20190401, end: 20190401
  26. BLOOD PLATELETS [Concomitant]
     Dosage: TOTAL DAILY DOSE: 1 U
     Route: 042
     Dates: start: 20190404, end: 20190404
  27. ISATUXIMAB [Suspect]
     Active Substance: ISATUXIMAB
     Indication: PLASMA CELL MYELOMA
     Dosage: 20 MG/KG, QW, FROM 10:34 TO 14:37
     Route: 042
     Dates: start: 20190410, end: 20190410
  28. TYLENOL [Concomitant]
     Active Substance: ACETAMINOPHEN
     Dosage: 650 MG, 1X
     Route: 048
     Dates: start: 20190410, end: 20190410
  29. RANITIDINE. [Concomitant]
     Active Substance: RANITIDINE
     Dosage: 50 MG, 1X
     Route: 042
     Dates: start: 20190410, end: 20190410
  30. METHYLPREDNISOLONE. [Concomitant]
     Active Substance: METHYLPREDNISOLONE
     Dosage: 100 MG, 1X
     Route: 042
     Dates: start: 20190403, end: 20190403
  31. SODIUM BICARBONATE. [Concomitant]
     Active Substance: SODIUM BICARBONATE
     Dosage: 4.5 G, QD
     Route: 048
     Dates: start: 20190410, end: 20190618
  32. FUROSEMIDE. [Concomitant]
     Active Substance: FUROSEMIDE
     Dosage: 20 MG, QD
     Route: 042
     Dates: start: 20190329, end: 20190330
  33. VITAMIN C [Concomitant]
     Active Substance: ASCORBIC ACID
     Dosage: 2 MG, QD
     Route: 042
     Dates: start: 20190327, end: 20190401
  34. TORASEMIDE [Concomitant]
     Active Substance: TORSEMIDE
     Dosage: 10 MG, QD
     Route: 042
     Dates: start: 20190407, end: 20190407
  35. ISATUXIMAB [Suspect]
     Active Substance: ISATUXIMAB
     Dosage: 20 MG/KG, QW
     Route: 042
     Dates: start: 20190327, end: 20190327
  36. DIPHENHYDRAMINE. [Concomitant]
     Active Substance: DIPHENHYDRAMINE
     Indication: PROPHYLAXIS
     Dosage: 50 MG, 1X
     Route: 042
     Dates: start: 20190410, end: 20190410
  37. DIPHENHYDRAMINE. [Concomitant]
     Active Substance: DIPHENHYDRAMINE
     Dosage: 50 MG, 1X
     Route: 042
     Dates: start: 20190403, end: 20190403
  38. POTASSIUM CHLORIDE. [Concomitant]
     Active Substance: POTASSIUM CHLORIDE
     Dosage: 1 G, QD
     Route: 048
     Dates: start: 20190401, end: 20190405
  39. FUROSEMIDE. [Concomitant]
     Active Substance: FUROSEMIDE
     Dosage: 20 MG, QD
     Route: 042
     Dates: start: 20190401, end: 20190401
  40. FUROSEMIDE. [Concomitant]
     Active Substance: FUROSEMIDE
     Dosage: 20 MG, QD
     Route: 042
     Dates: start: 20190405, end: 20190405
  41. POTASSIUM CHLORIDE. [Concomitant]
     Active Substance: POTASSIUM CHLORIDE
     Dosage: 15 G, QD
     Route: 048
     Dates: start: 20190401, end: 20190405
  42. BLOOD PLATELETS [Concomitant]
     Dosage: TOTAL DAILY DOSE: 1 U
     Route: 042
     Dates: start: 20190407, end: 20190407
  43. TYLENOL [Concomitant]
     Active Substance: ACETAMINOPHEN
     Indication: PROPHYLAXIS
     Dosage: 650 MG, 1X
     Route: 048
     Dates: start: 20190403, end: 20190403
  44. MENTHOL. [Concomitant]
     Active Substance: MENTHOL
     Dosage: 1, QD
     Route: 050
     Dates: start: 20190329
  45. LATAMOXEF SODIUM [Concomitant]
     Dosage: 2 G, QD
     Route: 042
     Dates: start: 20190328, end: 20190410
  46. DEXAMETHASONE SODIUM PHOSPHATE. [Concomitant]
     Active Substance: DEXAMETHASONE SODIUM PHOSPHATE
     Dosage: 2 MG, QD
     Route: 042
     Dates: start: 20190404, end: 20190404
  47. PAMIDRONATE DISODIUM. [Concomitant]
     Active Substance: PAMIDRONATE DISODIUM
     Dosage: 2 MG, QD
     Route: 042
     Dates: start: 20190404, end: 20190404

REACTIONS (1)
  - Pneumonia [Fatal]

NARRATIVE: CASE EVENT DATE: 20190414
